FAERS Safety Report 14071084 (Version 1)
Quarter: 2017Q4

REPORT INFORMATION
  Report Type: Spontaneous
  Country: US (occurrence: US)
  Receive Date: 20171011
  Receipt Date: 20171011
  Transmission Date: 20180321
  Serious: Yes (Life-Threatening, Hospitalization, Other)
  Sender: FDA-Public Use
  Company Number: US-ACCORD-059742

PATIENT
  Age: 57 Year
  Sex: Female

DRUGS (3)
  1. CYCLOPHOSPHAMIDE/CYCLOPHOSPHAMIDE MONOHYDRATE [Concomitant]
     Indication: INVASIVE DUCTAL BREAST CARCINOMA
     Dosage: FOR FIVE CYCLES
  2. CAPECITABINE. [Suspect]
     Active Substance: CAPECITABINE
     Indication: INVASIVE DUCTAL BREAST CARCINOMA
  3. DOCETAXEL. [Suspect]
     Active Substance: DOCETAXEL
     Indication: INVASIVE DUCTAL BREAST CARCINOMA
     Dosage: FOR FIVE CYCLES

REACTIONS (2)
  - Hypersensitivity [Unknown]
  - Dihydropyrimidine dehydrogenase deficiency [Recovering/Resolving]
